FAERS Safety Report 4313682-X (Version None)
Quarter: 2004Q1

REPORT INFORMATION
  Report Type: 
  Country: None (occurrence: None)
  Receive Date: 20040305
  Receipt Date: 20040224
  Transmission Date: 20041129
  Serious: Yes (Other)
  Sender: FDA-Public Use
  Company Number: 2004-00805

PATIENT
  Sex: Male

DRUGS (2)
  1. FERRLECIT [Suspect]
     Indication: IRON DEFICIENCY ANAEMIA
     Dosage: SEE IMAGE
     Route: 042
  2. ERYTHROPOIETIN TREATMENT [Concomitant]

REACTIONS (3)
  - CONVULSION [None]
  - INTENTIONAL MISUSE [None]
  - OVERDOSE [None]
